FAERS Safety Report 6096858-3 (Version None)
Quarter: 2009Q1

REPORT INFORMATION
  Report Type: 
  Country: None (occurrence: None)
  Receive Date: 20090225
  Receipt Date: 20090225
  Transmission Date: 20090719
  Serious: Yes (Hospitalization)
  Sender: FDA-Public Use
  Company Number: None

PATIENT
  Sex: Female
  Weight: 84 kg

DRUGS (3)
  1. CARBOPLATIN [Suspect]
     Dosage: 569 MG
     Dates: end: 20090130
  2. TAXOTERE [Suspect]
     Dosage: 135 MG
     Dates: end: 20090130
  3. TAXOL [Suspect]
     Dosage: 108 MG
     Dates: end: 20090206

REACTIONS (3)
  - CHILLS [None]
  - FEBRILE NEUTROPENIA [None]
  - PAIN [None]
